FAERS Safety Report 26035809 (Version 1)
Quarter: 2025Q4

REPORT INFORMATION
  Report Type: Spontaneous
  Country: US (occurrence: US)
  Receive Date: 20251112
  Receipt Date: 20251112
  Transmission Date: 20260119
  Serious: Yes (Hospitalization, Other)
  Sender: GLAXOSMITHKLINE
  Company Number: US-GSK-US2025GSK145561

PATIENT
  Age: 76 Year
  Sex: Female

DRUGS (1)
  1. DOSTARLIMAB [Suspect]
     Active Substance: DOSTARLIMAB
     Indication: Uterine cancer
     Dosage: UNK (SEVERAL  MONTH)

REACTIONS (2)
  - Diabetic ketoacidosis [Unknown]
  - Mental status changes [Unknown]
